FAERS Safety Report 4755110-6 (Version None)
Quarter: 2005Q3

REPORT INFORMATION
  Report Type: 
  Country: None (occurrence: None)
  Receive Date: 20050825
  Receipt Date: 20050811
  Transmission Date: 20060218
  Serious: Yes (Hospitalization)
  Sender: FDA-Public Use
  Company Number: 05-0094PO

PATIENT
  Age: 22 Year
  Sex: Female

DRUGS (6)
  1. PONTAL (MEFENAMIC ACID) [Suspect]
     Indication: UPPER RESPIRATORY TRACT INFECTION
     Dosage: 500 MG, ONCE, ORAL
     Route: 048
     Dates: start: 20050802, end: 20050805
  2. FLOMOX (CEFCAPENE PIVOXIL HYDROCHLORIDE) [Suspect]
     Indication: UPPER RESPIRATORY TRACT INFECTION
     Dosage: 100 MG, 3 X A DAY, ORAL
     Route: 048
     Dates: start: 20050802, end: 20050805
  3. PL (SALICYLAMIDE/ACETAMINOPHEN/CAFFEINE/PROMETHAZINE METHYLENEDISALICY [Suspect]
     Indication: UPPER RESPIRATORY TRACT INFLAMMATION
     Dosage: 1 GRAM, 3 X A DAY, ORAL
     Route: 048
     Dates: start: 20050802, end: 20050805
  4. ISEPACIN (ISEPAMICIN SULFATE) [Concomitant]
  5. SELBEX (TEPRENONE) [Concomitant]
  6. BIOFERMIN (BACILLUS SUBTILIS, LACTOBACCILUS ACIDOPHILUS, STREPTOCOCCUS [Concomitant]

REACTIONS (3)
  - DIARRHOEA [None]
  - INTERSTITIAL LUNG DISEASE [None]
  - TONSILLAR HYPERTROPHY [None]
